FAERS Safety Report 4263665-3 (Version None)
Quarter: 2004Q1

REPORT INFORMATION
  Report Type: 
  Country: None (occurrence: None)
  Receive Date: 20040102
  Receipt Date: 20030927
  Transmission Date: 20041129
  Serious: Yes (Hospitalization, Other)
  Sender: FDA-Public Use
  Company Number: KII-2003-0006536

PATIENT
  Age: 49 Year
  Sex: Female

DRUGS (9)
  1. OXYCONTIN [Suspect]
     Indication: DRUG USE FOR UNKNOWN INDICATION
  2. BUSPIRONE (BUSPIRONE) [Suspect]
     Indication: DRUG USE FOR UNKNOWN INDICATION
  3. SSRI [Suspect]
     Indication: DRUG USE FOR UNKNOWN INDICATION
  4. ANGIOTENSIN RECEPTOR BLOCKER [Suspect]
     Indication: DRUG USE FOR UNKNOWN INDICATION
  5. GASTROINTESTINAL  PREPARATIONS [Suspect]
     Indication: DRUG USE FOR UNKNOWN INDICATION
  6. ORLISTAT (ORLISTAT) [Suspect]
     Indication: DRUG USE FOR UNKNOWN INDICATION
  7. ESTROGEN NOS (ESTROGENS NOS) [Suspect]
     Indication: DRUG USE FOR UNKNOWN INDICATION
  8. BENZODIAZEPINES DERIVATIVES [Suspect]
     Indication: DRUG USE FOR UNKNOWN INDICATION
  9. ACETYLSALICYLIC ACID SRT [Suspect]
     Indication: DRUG USE FOR UNKNOWN INDICATION

REACTIONS (18)
  - AGGRESSION [None]
  - ANION GAP ABNORMAL [None]
  - ARTHRALGIA [None]
  - ASPARTATE AMINOTRANSFERASE INCREASED [None]
  - BLOOD CALCIUM DECREASED [None]
  - BLOOD CHLORIDE DECREASED [None]
  - BLOOD GLUCOSE INCREASED [None]
  - BLOOD SODIUM DECREASED [None]
  - BODY TEMPERATURE INCREASED [None]
  - DYSARTHRIA [None]
  - HALLUCINATION [None]
  - LETHARGY [None]
  - MEMORY IMPAIRMENT [None]
  - MULTIPLE DRUG OVERDOSE [None]
  - PNEUMONIA [None]
  - RESTLESSNESS [None]
  - SEDATION [None]
  - SINUS TACHYCARDIA [None]
